FAERS Safety Report 4675159-1 (Version None)
Quarter: 2005Q2

REPORT INFORMATION
  Report Type: 
  Country: None (occurrence: None)
  Receive Date: 20050526
  Receipt Date: 20050513
  Transmission Date: 20051028
  Serious: Yes (Other)
  Sender: FDA-Public Use
  Company Number: 2005076455

PATIENT

DRUGS (6)
  1. CELEBREX [Suspect]
     Indication: ARTHRALGIA
     Dosage: ORAL
     Route: 048
  2. CELEBREX [Suspect]
     Indication: CHONDROPATHY
     Dosage: ORAL
     Route: 048
  3. BEXTRA [Suspect]
     Indication: ARTHRALGIA
     Dosage: ORAL
     Route: 048
  4. BEXTRA [Suspect]
     Indication: CHONDROPATHY
     Dosage: ORAL
     Route: 048
  5. COUMADIN [Concomitant]
  6. ALL OTHER THERAPEUTIC PRODUCTS (ALL OTHER THERAPEUTIC PRODUCTS) [Concomitant]

REACTIONS (7)
  - BRADYPHRENIA [None]
  - DRUG INEFFECTIVE [None]
  - EMPHYSEMA [None]
  - FAT TISSUE INCREASED [None]
  - KNEE ARTHROPLASTY [None]
  - MOBILITY DECREASED [None]
  - WEIGHT INCREASED [None]
